FAERS Safety Report 8593351-0 (Version None)
Quarter: 2012Q3

REPORT INFORMATION
  Report Type: 
  Country: None (occurrence: None)
  Receive Date: 20120814
  Receipt Date: 20120808
  Transmission Date: 20120928
  Serious: No
  Sender: FDA-Public Use
  Company Number: US-ASTRAZENECA-2012SE43332

PATIENT
  Age: 67 Year
  Sex: Female
  Weight: 79.4 kg

DRUGS (15)
  1. OMEPRAZOLE [Suspect]
     Indication: HIATUS HERNIA
     Route: 048
  2. LISINOPRIL [Concomitant]
     Indication: BLOOD PRESSURE ABNORMAL
  3. IRON PILL [Concomitant]
     Indication: ANAEMIA
  4. TORSEMIDE [Concomitant]
     Indication: FLUID IMBALANCE
  5. OMEPRAZOLE [Suspect]
     Indication: GASTROOESOPHAGEAL REFLUX DISEASE
     Route: 048
  6. MEPRAZONE [Concomitant]
     Indication: VERTIGO
  7. PLAVIX [Concomitant]
     Indication: ANGIOPATHY
  8. KLOR-CON [Concomitant]
     Indication: MINERAL SUPPLEMENTATION
  9. PHENERGRAN [Concomitant]
     Indication: NAUSEA
  10. CLORAZAEPATE [Concomitant]
     Indication: NERVOUS SYSTEM DISORDER
  11. NEXIUM [Suspect]
     Route: 048
     Dates: start: 20120529
  12. ATENOLOL [Concomitant]
     Indication: BLOOD PRESSURE ABNORMAL
  13. CLONIDINE [Concomitant]
     Indication: BLOOD PRESSURE ABNORMAL
  14. ASPIRIN [Concomitant]
     Indication: ANGIOPATHY
  15. PERCOCET [Concomitant]
     Indication: PAIN

REACTIONS (2)
  - MALAISE [None]
  - FEELING ABNORMAL [None]
